FAERS Safety Report 9904572 (Version 1)
Quarter: 2014Q1

REPORT INFORMATION
  Report Type: Spontaneous
  Country: US (occurrence: US)
  Receive Date: 20140218
  Receipt Date: 20140218
  Transmission Date: 20141002
  Serious: No
  Sender: FDA-Public Use
  Company Number: US-009507513-1402USA006871

PATIENT
  Sex: Male

DRUGS (2)
  1. JANUVIA [Suspect]
     Indication: GLYCOSYLATED HAEMOGLOBIN
     Dosage: 25 MG, QD
     Route: 048
  2. BLOOD THINNER (UNSPECIFIED) [Concomitant]
     Dosage: UNK

REACTIONS (2)
  - Stent placement [Recovered/Resolved]
  - Chest pain [Recovered/Resolved]
